FAERS Safety Report 9764652 (Version 1)
Quarter: 2013Q4

REPORT INFORMATION
  Report Type: Spontaneous
  Country: US (occurrence: None)
  Receive Date: 20131213
  Receipt Date: 20131213
  Transmission Date: 20140711
  Serious: Yes (Other)
  Sender: FDA-Public Use
  Company Number: 2013SA031781

PATIENT
  Sex: Male
  Weight: 92.86 kg

DRUGS (1)
  1. ICY HOT [Suspect]
     Indication: PRODUCT USED FOR UNKNOWN INDICATION
     Route: 061
     Dates: start: 20080508

REACTIONS (9)
  - Pain [None]
  - Blister [None]
  - Skin discolouration [None]
  - Application site burn [None]
  - Contusion [None]
  - Swelling [None]
  - Infection [None]
  - Application site discolouration [None]
  - Wound secretion [None]
